FAERS Safety Report 17816410 (Version 1)
Quarter: 2020Q2

REPORT INFORMATION
  Report Type: Spontaneous
  Country: US (occurrence: US)
  Receive Date: 20200522
  Receipt Date: 20200522
  Transmission Date: 20200714
  Serious: No
  Sender: FDA-Public Use
  Company Number: US-PFIZER INC-2020202451

PATIENT
  Sex: Female
  Weight: 88.45 kg

DRUGS (1)
  1. LYRICA [Suspect]
     Active Substance: PREGABALIN
     Indication: FIBROMYALGIA
     Dosage: UNK
     Dates: start: 2009

REACTIONS (8)
  - Hot flush [Recovered/Resolved]
  - Anxiety [Recovered/Resolved]
  - Withdrawal syndrome [Recovered/Resolved]
  - Nasopharyngitis [Recovered/Resolved]
  - Disturbance in attention [Recovered/Resolved]
  - Agitation [Recovered/Resolved]
  - Anger [Recovered/Resolved]
  - Diarrhoea [Recovered/Resolved]
